FAERS Safety Report 4707607-2 (Version None)
Quarter: 2005Q3

REPORT INFORMATION
  Report Type: 
  Country: None (occurrence: None)
  Receive Date: 20050705
  Receipt Date: 20050622
  Transmission Date: 20060218
  Serious: Yes (Hospitalization)
  Sender: FDA-Public Use
  Company Number: 2005092047

PATIENT
  Age: 85 Year
  Sex: Male

DRUGS (6)
  1. SULPERAZON (SULBACTAM, CEFOPERAZONE) [Suspect]
     Indication: ILL-DEFINED DISORDER
     Dosage: INTRAVENOUS
     Route: 042
  2. EPIRUBICIN [Suspect]
  3. URSODIOL [Concomitant]
  4. MUCOSTA (REBAMIPIDE) [Concomitant]
  5. GLAKAY (MENATETRENONE) [Concomitant]
  6. STRONG NEO-MINOPHAGEN C (AMINOACETIC ACID, CYSTEINE, GLYCYRRHIZIC ACID [Concomitant]

REACTIONS (3)
  - BLISTER [None]
  - DRUG ERUPTION [None]
  - ERYTHEMA MULTIFORME [None]
